FAERS Safety Report 5593072-2 (Version None)
Quarter: 2008Q1

REPORT INFORMATION
  Report Type: 
  Country: None (occurrence: None)
  Receive Date: 20080114
  Receipt Date: 20071228
  Transmission Date: 20080703
  Serious: Yes (Hospitalization)
  Sender: FDA-Public Use
  Company Number: 6040095

PATIENT
  Age: 65 Year
  Sex: Male

DRUGS (2)
  1. BISOPROLOL FUMARATE [Suspect]
     Indication: DRUG USE FOR UNKNOWN INDICATION
     Dosage: ORAL
     Route: 048
     Dates: start: 20071121, end: 20071127
  2. ALDACTONE [Concomitant]

REACTIONS (3)
  - CARDIOGENIC SHOCK [None]
  - HYPERKALAEMIA [None]
  - NODAL RHYTHM [None]
